FAERS Safety Report 4835818-4 (Version None)
Quarter: 2005Q4

REPORT INFORMATION
  Report Type: 
  Country: None (occurrence: None)
  Receive Date: 20051123
  Receipt Date: 20051114
  Transmission Date: 20060501
  Serious: Yes (Hospitalization)
  Sender: FDA-Public Use
  Company Number: 2005CG01890

PATIENT
  Age: 47 Year
  Sex: Male
  Weight: 130 kg

DRUGS (6)
  1. ATACAND [Suspect]
     Indication: HYPERTENSION
     Route: 048
     Dates: end: 20050806
  2. EFFEXOR XR [Suspect]
     Indication: DEPRESSION
     Route: 048
     Dates: start: 20040901, end: 20050810
  3. ZYPREXA [Suspect]
     Indication: DEPRESSION
     Route: 048
     Dates: start: 20050515, end: 20050806
  4. TEGRETOL [Suspect]
     Indication: DEPRESSION
     Route: 048
     Dates: start: 20050615, end: 20050810
  5. TRILEPTAL [Suspect]
     Indication: TREMOR
     Route: 048
     Dates: start: 20040901, end: 20050810
  6. XANAX [Concomitant]

REACTIONS (10)
  - ALANINE AMINOTRANSFERASE INCREASED [None]
  - ANAEMIA [None]
  - ASPARTATE AMINOTRANSFERASE INCREASED [None]
  - BLOOD ALKALINE PHOSPHATASE INCREASED [None]
  - DEPRESSION [None]
  - DRUG RASH WITH EOSINOPHILIA AND SYSTEMIC SYMPTOMS [None]
  - GAMMA-GLUTAMYLTRANSFERASE INCREASED [None]
  - LIVER DISORDER [None]
  - RENAL TUBULAR DISORDER [None]
  - TREMOR [None]
